FAERS Safety Report 6839191-1 (Version None)
Quarter: 2010Q2

REPORT INFORMATION
  Report Type: 
  Country: None (occurrence: None)
  Receive Date: 20100629
  Receipt Date: 20100308
  Transmission Date: 20101027
  Serious: Yes (Other)
  Sender: FDA-Public Use
  Company Number: US-WYE-H13942010

PATIENT
  Age: 76 Year
  Sex: Male
  Weight: 72.64 kg

DRUGS (2)
  1. TORISEL [Suspect]
     Indication: RENAL CELL CARCINOMA
     Dosage: 25 MG 1X PER 1 WK, INTRAVENOUS
     Route: 042
     Dates: start: 20100108, end: 20100312
  2. MODURETIC 5-50 [Concomitant]

REACTIONS (1)
  - RASH PRURITIC [None]
